FAERS Safety Report 18201971 (Version 1)
Quarter: 2020Q3

REPORT INFORMATION
  Report Type: Spontaneous
  Country: JP (occurrence: JP)
  Receive Date: 20200827
  Receipt Date: 20200827
  Transmission Date: 20201103
  Serious: Yes (Hospitalization, Other)
  Sender: FDA-Public Use
  Company Number: JP-ACCORD-197498

PATIENT
  Age: 74 Year
  Sex: Male
  Weight: 43.8 kg

DRUGS (5)
  1. TACROLIMUS. [Suspect]
     Active Substance: TACROLIMUS
     Indication: IMMUNOSUPPRESSION
  2. EVEROLIMUS. [Interacting]
     Active Substance: EVEROLIMUS
     Indication: IMMUNOSUPPRESSION
  3. METHYLPREDNISOLONE. [Interacting]
     Active Substance: METHYLPREDNISOLONE
     Indication: IMMUNOSUPPRESSION
  4. SUNITINIB [Interacting]
     Active Substance: SUNITINIB
     Indication: CLEAR CELL RENAL CELL CARCINOMA
     Dosage: 2 WEEKS ON AND 1 WEEK OFF
  5. MIZORIBINE [Interacting]
     Active Substance: MIZORIBINE
     Indication: IMMUNOSUPPRESSION

REACTIONS (3)
  - Drug interaction [Unknown]
  - Diarrhoea [Unknown]
  - Dyspepsia [Unknown]
